FAERS Safety Report 11981019 (Version 2)
Quarter: 2016Q2

REPORT INFORMATION
  Report Type: Report from Study
  Country: US (occurrence: US)
  Receive Date: 20160129
  Receipt Date: 20160615
  Transmission Date: 20160815
  Serious: Yes (Hospitalization)
  Sender: FDA-Public Use
  Company Number: US-B.I. PHARMACEUTICALS,INC./RIDGEFIELD-2015-BI-58658BP

PATIENT
  Sex: Male

DRUGS (1)
  1. OFEV [Suspect]
     Active Substance: NINTEDANIB
     Indication: IDIOPATHIC PULMONARY FIBROSIS
     Dosage: 200 MG
     Route: 048
     Dates: start: 20150929

REACTIONS (8)
  - Fatigue [Unknown]
  - Weight decreased [Unknown]
  - Dysphonia [Unknown]
  - Dyspnoea exertional [Unknown]
  - Gastric disorder [Unknown]
  - Asthenia [Unknown]
  - Constipation [Unknown]
  - Decreased appetite [Unknown]
